FAERS Safety Report 6420627-5 (Version None)
Quarter: 2009Q4

REPORT INFORMATION
  Report Type: 
  Country: None (occurrence: None)
  Receive Date: 20091027
  Receipt Date: 20091015
  Transmission Date: 20100525
  Serious: Yes (Other)
  Sender: FDA-Public Use
  Company Number: 231455J09USA

PATIENT
  Age: 27 Year
  Sex: Female
  Weight: 57 kg

DRUGS (5)
  1. REBIF [Suspect]
     Indication: MULTIPLE SCLEROSIS
     Dosage: 44 MCG, 3 IN 1 WEEKS, SUBCUTANEOUS
     Route: 058
     Dates: start: 20090519, end: 20090801
  2. LAMISIL [Suspect]
     Indication: FUNGAL INFECTION
  3. ZYRTEC [Concomitant]
  4. CLARITIN [Concomitant]
  5. NASAL SPRAY(OXYMETAZOLINE HYDROCHLORIDE) [Concomitant]

REACTIONS (1)
  - AUTOIMMUNE HEPATITIS [None]
